FAERS Safety Report 9645919 (Version 1)
Quarter: 2013Q4

REPORT INFORMATION
  Report Type: Spontaneous
  Country: US (occurrence: None)
  Receive Date: 20131024
  Receipt Date: 20131024
  Transmission Date: 20140711
  Serious: Yes (Other)
  Sender: FDA-Public Use
  Company Number: None

PATIENT
  Age: 57 Year
  Sex: Female

DRUGS (1)
  1. STIVARGA 40MG BAYER [Suspect]
     Indication: RECTAL CANCER
     Dosage: 120MG DAILY FOR 21 DAYS, ORAL
     Route: 048
     Dates: start: 20121114

REACTIONS (1)
  - Dyspnoea [None]
